FAERS Safety Report 12769099 (Version 1)
Quarter: 2016Q3

REPORT INFORMATION
  Report Type: Spontaneous
  Country: DK (occurrence: DK)
  Receive Date: 20160921
  Receipt Date: 20160921
  Transmission Date: 20161109
  Serious: Yes (Hospitalization)
  Sender: FDA-Public Use
  Company Number: DK-MYLANLABS-2016M1039546

PATIENT

DRUGS (25)
  1. BUSCOPAN [Concomitant]
     Active Substance: BUTYLSCOPOLAMINE BROMIDE
  2. KLORZOXAZON [Concomitant]
     Dosage: 500 MG, TID
  3. AMITRIPTYLINE [Concomitant]
     Active Substance: AMITRIPTYLINE
     Dosage: 10 MG, QD
  4. CIRCADIN [Concomitant]
     Active Substance: MELATONIN
     Dosage: 2 MG, BID
  5. NOSKAPIN [Concomitant]
     Active Substance: NOSCAPINE
     Dosage: 25 MG PN
  6. DOLOL                              /00020001/ [Concomitant]
     Active Substance: ACETAMINOPHEN
     Dosage: 100 MG, QID
  7. BUSCOPAN [Concomitant]
     Active Substance: BUTYLSCOPOLAMINE BROMIDE
     Indication: PRODUCT USED FOR UNKNOWN INDICATION
  8. OMEPRAZOL                          /00661201/ [Concomitant]
     Active Substance: OMEPRAZOLE
     Dates: start: 20120828
  9. DOLOL                              /00020001/ [Concomitant]
     Active Substance: ACETAMINOPHEN
     Dosage: 100 MG, QID
  10. KLORZOXAZON [Concomitant]
     Indication: MYALGIA
     Dosage: 500 MG, TID
  11. KLORZOXAZON [Concomitant]
     Dosage: 500 MG, TID
  12. GABAPENTIN. [Suspect]
     Active Substance: GABAPENTIN
     Indication: PAIN
     Dosage: DOSIS: 300 MG 2 GANGE DAGLIG EVT. STIGENDE TIL 300 MG 3 GANGE DAGLIG. STYRKE: 300 MG.
     Route: 048
     Dates: start: 201210
  13. OMEPRAZOL                          /00661201/ [Concomitant]
     Active Substance: OMEPRAZOLE
     Dates: start: 20120828
  14. AMITRIPTYLINE [Concomitant]
     Active Substance: AMITRIPTYLINE
     Dosage: 10 MG, QD
  15. NOSKAPIN [Concomitant]
     Active Substance: NOSCAPINE
     Indication: PRODUCT USED FOR UNKNOWN INDICATION
     Dosage: 25 MG PN
  16. DOLOL                              /00020001/ [Concomitant]
     Active Substance: ACETAMINOPHEN
     Indication: PAIN
     Dosage: 100 MG, QID
  17. GABAPENTIN. [Concomitant]
     Active Substance: GABAPENTIN
     Indication: PRODUCT USED FOR UNKNOWN INDICATION
     Dosage: 300 MG, BID
  18. NOSKAPIN [Concomitant]
     Active Substance: NOSCAPINE
     Dosage: 25 MG PN
  19. BUSCOPAN [Concomitant]
     Active Substance: BUTYLSCOPOLAMINE BROMIDE
  20. OMEPRAZOL                          /00661201/ [Concomitant]
     Active Substance: OMEPRAZOLE
     Indication: GASTRIC ULCER
     Dates: start: 20120828
  21. AMITRIPTYLINE [Concomitant]
     Active Substance: AMITRIPTYLINE
     Indication: SEDATIVE THERAPY
     Dosage: 10 MG, QD
  22. GABAPENTIN. [Concomitant]
     Active Substance: GABAPENTIN
     Dosage: 300 MG, BID
  23. CIRCADIN [Concomitant]
     Active Substance: MELATONIN
     Indication: INSOMNIA
     Dosage: 2 MG, BID
  24. CIRCADIN [Concomitant]
     Active Substance: MELATONIN
     Dosage: 2 MG, BID
  25. GABAPENTIN. [Concomitant]
     Active Substance: GABAPENTIN
     Dosage: 300 MG, BID

REACTIONS (2)
  - Somnolence [Unknown]
  - Seizure [Unknown]

NARRATIVE: CASE EVENT DATE: 201210
